FAERS Safety Report 11604956 (Version 2)
Quarter: 2015Q4

REPORT INFORMATION
  Report Type: Spontaneous
  Country: CH (occurrence: CH)
  Receive Date: 20151007
  Receipt Date: 20151229
  Transmission Date: 20160304
  Serious: Yes (Hospitalization)
  Sender: FDA-Public Use
  Company Number: PHHY2015CH116358

PATIENT
  Age: 36 Year
  Sex: Female

DRUGS (8)
  1. PANADOL [Concomitant]
     Active Substance: ACETAMINOPHEN
     Indication: PREMEDICATION
     Dosage: 1000 MG, UNK
     Route: 048
     Dates: start: 20150817, end: 20150821
  2. NEXIUM [Suspect]
     Active Substance: ESOMEPRAZOLE MAGNESIUM
     Indication: PROPHYLAXIS
     Dosage: 20 MG, UNK
     Route: 048
     Dates: start: 20150817, end: 20150821
  3. VALTREX [Suspect]
     Active Substance: VALACYCLOVIR HYDROCHLORIDE
     Indication: ANTIVIRAL PROPHYLAXIS
     Dosage: 1000 MG, UNK
     Route: 048
     Dates: start: 20150817
  4. TAVEGYL [Suspect]
     Active Substance: CLEMASTINE FUMARATE
     Indication: NAUSEA
     Dosage: 1 MG, QD
     Route: 048
     Dates: start: 20150817, end: 20150821
  5. LEMTRADA [Suspect]
     Active Substance: ALEMTUZUMAB
     Indication: PROGRESSIVE RELAPSING MULTIPLE SCLEROSIS
     Dosage: 12 MG, UNK
     Route: 042
     Dates: start: 20150817, end: 20150821
  6. ONDANSETRON LABATEC [Suspect]
     Active Substance: ONDANSETRON
     Indication: NAUSEA
     Dosage: 12 MG, QD
     Route: 048
     Dates: start: 20150817, end: 20150821
  7. ZOFRAN [Suspect]
     Active Substance: ONDANSETRON HYDROCHLORIDE
     Indication: NAUSEA
     Dosage: 18 MG, UNK
     Route: 042
     Dates: start: 20150818, end: 20150821
  8. SOLU-MEDROL [Concomitant]
     Active Substance: METHYLPREDNISOLONE SODIUM SUCCINATE
     Indication: PRODUCT USED FOR UNKNOWN INDICATION
     Dosage: 100 MG, UNK
     Route: 040
     Dates: start: 20150817, end: 20150821

REACTIONS (3)
  - Nausea [Recovered/Resolved]
  - Rash [Not Recovered/Not Resolved]
  - Sinus bradycardia [Recovering/Resolving]

NARRATIVE: CASE EVENT DATE: 20150817
